FAERS Safety Report 6570331-8 (Version None)
Quarter: 2010Q1

REPORT INFORMATION
  Report Type: 
  Country: None (occurrence: None)
  Receive Date: 20100204
  Receipt Date: 20100126
  Transmission Date: 20100710
  Serious: Yes (Hospitalization, Other)
  Sender: FDA-Public Use
  Company Number: US-JNJFOC-20090905282

PATIENT
  Sex: Female
  Weight: 80.29 kg

DRUGS (5)
  1. DURAGESIC-100 [Suspect]
     Indication: BACK PAIN
     Route: 062
  2. LEXAPRO [Concomitant]
     Indication: DEPRESSION
     Route: 048
  3. LIPITOR [Concomitant]
     Indication: BLOOD CHOLESTEROL
     Route: 048
  4. ASPIRIN [Concomitant]
     Indication: THROMBOSIS
     Route: 048
  5. WELLBUTRIN [Concomitant]
     Indication: DEPRESSION

REACTIONS (3)
  - ANGINA PECTORIS [None]
  - HYPERTENSION [None]
  - WEIGHT INCREASED [None]
